FAERS Safety Report 9624565 (Version 3)
Quarter: 2013Q4

REPORT INFORMATION
  Report Type: Spontaneous
  Country: IT (occurrence: IT)
  Receive Date: 20131015
  Receipt Date: 20131101
  Transmission Date: 20140711
  Serious: Yes (Other)
  Sender: FDA-Public Use
  Company Number: IT-TEVA-436697ISR

PATIENT
  Age: 76 Year
  Sex: Female

DRUGS (2)
  1. TICLOPIDINA CLORIDRATO [Suspect]
     Indication: CAROTID ARTERY DISEASE
     Dosage: 500 MILLIGRAM DAILY;
     Route: 048
     Dates: start: 20130909, end: 20130911
  2. VASORETIC 20MG + 12.5MG [Concomitant]
     Indication: HYPERTENSION
     Dosage: 1 DOSAGE FORM = ENALAPRIL MALEATE 20MG + HYDROCHLOROTHIAZIDE 12.5MG

REACTIONS (1)
  - Hypertensive crisis [Recovered/Resolved]
